FAERS Safety Report 21074354 (Version 2)
Quarter: 2023Q1

REPORT INFORMATION
  Report Type: Spontaneous
  Country: BR (occurrence: BR)
  Receive Date: 20220713
  Receipt Date: 20230221
  Transmission Date: 20230417
  Serious: No
  Sender: FDA-Public Use
  Company Number: BR-CELLTRION INC.-2022BR010912

PATIENT

DRUGS (8)
  1. TRUXIMA [Suspect]
     Active Substance: RITUXIMAB-ABBS
     Indication: Follicular lymphoma stage III
     Dosage: 658 MG, 5 CYCLES EVERY 28 DAYS
     Route: 042
     Dates: start: 20220627
  2. CHLORAMBUCIL [Suspect]
     Active Substance: CHLORAMBUCIL
     Indication: Lymphoma
     Dosage: UNK UNK, CYCLIC
     Dates: start: 20220627
  3. MORPHINE [Concomitant]
     Active Substance: MORPHINE
     Indication: Lymphoma
     Dosage: 100 MG
  4. ACETAMINOPHEN [Concomitant]
     Active Substance: ACETAMINOPHEN
     Indication: Premedication
     Dosage: 750 MG, CYCLIC
  5. CAPSAICIN [Concomitant]
     Active Substance: CAPSAICIN
     Indication: Lymphoma
     Dosage: UNK
  6. CALCIUM GLUCONATE [Concomitant]
     Active Substance: CALCIUM GLUCONATE
     Indication: Lymphoma
     Dosage: UNK
  7. DIPHENHYDRAMINE [Concomitant]
     Active Substance: DIPHENHYDRAMINE
     Indication: Premedication
     Dosage: 50 MG
  8. DEXTROSE\SODIUM CHLORIDE [Concomitant]
     Active Substance: DEXTROSE\SODIUM CHLORIDE
     Dosage: UNK, CYCLIC

REACTIONS (2)
  - Infusion related reaction [Recovered/Resolved]
  - Underdose [Unknown]

NARRATIVE: CASE EVENT DATE: 20220627
